FAERS Safety Report 6551911-2 (Version None)
Quarter: 2010Q1

REPORT INFORMATION
  Report Type: 
  Country: None (occurrence: None)
  Receive Date: 20100126
  Receipt Date: 20100114
  Transmission Date: 20100710
  Serious: Yes (Other)
  Sender: FDA-Public Use
  Company Number: CA-ELI_LILLY_AND_COMPANY-CA201001002925

PATIENT
  Sex: Female

DRUGS (4)
  1. CYMBALTA [Suspect]
     Indication: DEPRESSION
     Dosage: 60 MG, EACH MORNING
     Dates: start: 20090324, end: 20090824
  2. ZELDOX [Concomitant]
     Indication: DELUSION
     Dosage: 40 MG, UNK
     Dates: start: 20090324, end: 20090504
  3. ZELDOX [Concomitant]
     Dosage: 40 MG, 2/D
     Dates: start: 20090505, end: 20090821
  4. SYNTHROID [Concomitant]
     Indication: HYPOTHYROIDISM
     Dosage: 0.1 MG, UNK
     Dates: start: 20000101

REACTIONS (3)
  - ANXIETY [None]
  - DYSTONIA [None]
  - TARDIVE DYSKINESIA [None]
